FAERS Safety Report 7450268-2 (Version None)
Quarter: 2011Q1

REPORT INFORMATION
  Report Type: 
  Country: None (occurrence: None)
  Receive Date: 20110302
  Receipt Date: 20101207
  Transmission Date: 20110831
  Serious: No
  Sender: FDA-Public Use
  Company Number: 023396

PATIENT
  Sex: Female
  Weight: 96.2 kg

DRUGS (2)
  1. SULFAZINE [Concomitant]
  2. CIMZIA [Suspect]
     Indication: CROHN'S DISEASE
     Dosage: 400 MG 1X/MONTH ORAL
     Route: 048
     Dates: start: 20100128, end: 20100701

REACTIONS (3)
  - BREAST MASS [None]
  - ASTHENIA [None]
  - FATIGUE [None]
